FAERS Safety Report 16040067 (Version 2)
Quarter: 2019Q2

REPORT INFORMATION
  Report Type: Spontaneous
  Country: FR (occurrence: FR)
  Receive Date: 20190306
  Receipt Date: 20190514
  Transmission Date: 20190711
  Serious: Yes (Hospitalization, Other)
  Sender: FDA-Public Use
  Company Number: FR-AMGEN-FRASP2019032918

PATIENT
  Age: 69 Year
  Sex: Female
  Weight: 64 kg

DRUGS (1)
  1. PROLIA [Suspect]
     Active Substance: DENOSUMAB
     Indication: OSTEOPOROTIC FRACTURE
     Dosage: UNK, Q6MO
     Route: 058
     Dates: start: 201508, end: 20170808

REACTIONS (2)
  - Hypercalcaemia [Unknown]
  - Multiple fractures [Unknown]

NARRATIVE: CASE EVENT DATE: 201808
